FAERS Safety Report 11183748 (Version 6)
Quarter: 2016Q1

REPORT INFORMATION
  Report Type: Spontaneous
  Country: US (occurrence: US)
  Receive Date: 20150612
  Receipt Date: 20160317
  Transmission Date: 20160525
  Serious: Yes (Hospitalization)
  Sender: FDA-Public Use
  Company Number: US-HORIZON-RAV-0025-2015

PATIENT
  Age: 12 Year
  Sex: Male

DRUGS (5)
  1. METHYLPHENIDATE. [Concomitant]
     Active Substance: METHYLPHENIDATE
     Indication: ATTENTION DEFICIT/HYPERACTIVITY DISORDER
  2. RAVICTI [Suspect]
     Active Substance: GLYCEROL PHENYLBUTYRATE
     Indication: ARGININOSUCCINATE SYNTHETASE DEFICIENCY
     Dosage: 5 ML THREE TIMES DAILY
     Route: 048
     Dates: start: 20150525
  3. PROTEIN [Concomitant]
     Active Substance: PROTEIN
     Indication: SUPPLEMENTATION THERAPY
     Dosage: 30 G
  4. ARGININE [Concomitant]
     Active Substance: ARGININE
     Indication: ARGININOSUCCINATE SYNTHETASE DEFICIENCY
  5. ANAMIX [Concomitant]

REACTIONS (5)
  - Vomiting [Recovered/Resolved]
  - Decreased appetite [Recovering/Resolving]
  - Aggression [Recovered/Resolved]
  - Nervous system disorder [Recovered/Resolved]
  - Seizure [Recovered/Resolved]

NARRATIVE: CASE EVENT DATE: 20150528
